FAERS Safety Report 11445405 (Version 1)
Quarter: 2015Q3

REPORT INFORMATION
  Report Type: Spontaneous
  Country: BR (occurrence: BR)
  Receive Date: 20150902
  Receipt Date: 20150902
  Transmission Date: 20151125
  Serious: Yes (Death)
  Sender: FDA-Public Use
  Company Number: BR-B.I. PHARMACEUTICALS,INC./RIDGEFIELD-2015-BI-46561BR

PATIENT
  Age: 49 Year
  Sex: Male
  Weight: 120 kg

DRUGS (6)
  1. GARBAPENTINA [Concomitant]
     Indication: NEURALGIA
     Route: 048
  2. HYDOCLOROTIAZIDE [Concomitant]
     Indication: PRODUCT USED FOR UNKNOWN INDICATION
     Route: 048
  3. TRADJENTA [Suspect]
     Active Substance: LINAGLIPTIN
     Indication: TYPE 2 DIABETES MELLITUS
     Route: 048
     Dates: end: 20150531
  4. ENALAPRIL [Concomitant]
     Active Substance: ENALAPRIL
     Indication: HYPERTENSION
     Route: 048
  5. CLORIDRATO DE LOPERAMIDA [Concomitant]
     Indication: DIARRHOEA
     Route: 048
  6. CLORIDRATO DE HIDRALAZINA [Concomitant]
     Indication: HYPERTENSION
     Route: 048

REACTIONS (4)
  - Septic shock [Fatal]
  - Acute kidney injury [Fatal]
  - Diabetic foot infection [Fatal]
  - Dialysis [Fatal]

NARRATIVE: CASE EVENT DATE: 20150614
